FAERS Safety Report 10712406 (Version 3)
Quarter: 2015Q1

REPORT INFORMATION
  Report Type: Spontaneous
  Country: JP (occurrence: JP)
  Receive Date: 20150115
  Receipt Date: 20150320
  Transmission Date: 20150721
  Serious: Yes (Life-Threatening, Hospitalization, Disabling, Other)
  Sender: FDA-Public Use
  Company Number: JP-009507513-1501JPN002991

PATIENT
  Age: 63 Year
  Sex: Female
  Weight: 39 kg

DRUGS (18)
  1. ABILIFY [Suspect]
     Active Substance: ARIPIPRAZOLE
     Indication: BEHAVIOURAL AND PSYCHIATRIC SYMPTOMS OF DEMENTIA
     Dosage: 3 MG, QD
     Route: 048
     Dates: start: 20141209, end: 20141216
  2. RESTAMIN (DIPHENHYDRAMINE HYDROCHLORIDE) [Suspect]
     Active Substance: DIPHENHYDRAMINE HYDROCHLORIDE
     Indication: RASH
     Dosage: DAILY DOSE UNKNOWN, QD
     Route: 061
     Dates: start: 20141211, end: 20141215
  3. QUETIAPINE FUMARATE. [Concomitant]
     Active Substance: QUETIAPINE FUMARATE
     Indication: BEHAVIOURAL AND PSYCHIATRIC SYMPTOMS OF DEMENTIA
     Dosage: 25 MG, QD
     Route: 048
     Dates: start: 20140908
  4. PASTARON [Suspect]
     Active Substance: UREA
     Indication: ACARODERMATITIS
  5. RIVOTRIL [Concomitant]
     Active Substance: CLONAZEPAM
     Indication: BEHAVIOURAL AND PSYCHIATRIC SYMPTOMS OF DEMENTIA
     Dosage: 0.5 MG, BID
     Route: 048
     Dates: start: 20140908
  6. PASTARON [Suspect]
     Active Substance: UREA
     Indication: RASH
     Dosage: DAILY DOSE UNKNOWN, QD
     Route: 061
     Dates: start: 20141211, end: 20141215
  7. REFLEX [Concomitant]
     Active Substance: MIRTAZAPINE
     Indication: DEPRESSIVE SYMPTOM
     Dosage: 30 MG, QD
     Route: 048
     Dates: start: 201302
  8. STROMECTOL [Suspect]
     Active Substance: IVERMECTIN
     Indication: ACARODERMATITIS
     Dosage: 9 MG, QD
     Route: 048
     Dates: start: 20141211, end: 20141211
  9. POLARAMINE [Suspect]
     Active Substance: DEXCHLORPHENIRAMINE MALEATE
     Indication: ACARODERMATITIS
  10. EURAX [Suspect]
     Active Substance: CROTAMITON
     Indication: ACARODERMATITIS
  11. REFLEX [Concomitant]
     Active Substance: MIRTAZAPINE
     Indication: INSOMNIA
  12. GLYCYRON [Suspect]
     Active Substance: AMMONIUM GLYCYRRHIZATE\GLYCINE\METHIONINE
     Indication: RASH
     Dosage: 2 DOSAGE FORM, BID
     Route: 048
     Dates: start: 20141211, end: 20141215
  13. RESTAMIN (DIPHENHYDRAMINE HYDROCHLORIDE) [Suspect]
     Active Substance: DIPHENHYDRAMINE HYDROCHLORIDE
     Indication: ACARODERMATITIS
  14. DOPASOL [Concomitant]
     Active Substance: LEVODOPA
     Indication: INSOMNIA
     Dosage: 10 MG, QD
     Route: 048
     Dates: start: 20130908
  15. POLARAMINE [Suspect]
     Active Substance: DEXCHLORPHENIRAMINE MALEATE
     Indication: RASH
     Dosage: 2 MG, BID
     Route: 048
     Dates: start: 20141211, end: 20141215
  16. GLYCYRON [Suspect]
     Active Substance: AMMONIUM GLYCYRRHIZATE\GLYCINE\METHIONINE
     Indication: ACARODERMATITIS
  17. EURAX [Suspect]
     Active Substance: CROTAMITON
     Indication: RASH
     Dosage: DAILY DOSAGE UNKNOWN, QD
     Route: 061
     Dates: start: 20141211, end: 20141215
  18. DONEPEZIL HYDROCHLORIDE. [Concomitant]
     Active Substance: DONEPEZIL HYDROCHLORIDE
     Indication: DEMENTIA
     Dosage: 10 MG, QD
     Route: 048
     Dates: start: 201210

REACTIONS (1)
  - Erythema multiforme [Recovered/Resolved]

NARRATIVE: CASE EVENT DATE: 20141214
